FAERS Safety Report 10159552 (Version 1)
Quarter: 2014Q2

REPORT INFORMATION
  Report Type: Spontaneous
  Country: TR (occurrence: TR)
  Receive Date: 20140508
  Receipt Date: 20140508
  Transmission Date: 20141212
  Serious: Yes (Hospitalization, Other)
  Sender: FDA-Public Use
  Company Number: TR-NOVOPROD-409093

PATIENT
  Age: 1 Week
  Sex: Male
  Weight: 4 kg

DRUGS (1)
  1. INSULATARD HM PENFILL [Suspect]
     Indication: GESTATIONAL DIABETES
     Dosage: 4 U, QD
     Route: 064
     Dates: start: 20140102, end: 20140402

REACTIONS (2)
  - Melanocytic naevus [Recovered/Resolved]
  - Foetal exposure during pregnancy [Recovered/Resolved]
